FAERS Safety Report 13461418 (Version 2)
Quarter: 2017Q2

REPORT INFORMATION
  Report Type: Report from Study
  Country: IT (occurrence: IT)
  Receive Date: 20170420
  Receipt Date: 20170502
  Transmission Date: 20170830
  Serious: Yes (Hospitalization)
  Sender: FDA-Public Use
  Company Number: IT-TEVA-760598ACC

PATIENT
  Age: 45 Year
  Sex: Female

DRUGS (5)
  1. CHLORPROMAZINE. [Suspect]
     Active Substance: CHLORPROMAZINE
     Indication: PRODUCT USED FOR UNKNOWN INDICATION
  2. COMPENDIUM - POLIFARMA S.P.A. [Suspect]
     Active Substance: BROMAZEPAM
     Indication: PRODUCT USED FOR UNKNOWN INDICATION
  3. DAFLON - 500 MG COMPRESSE RIVESTITE CON FILM [Suspect]
     Active Substance: DIOSMIN\HESPERIDIN
     Indication: PRODUCT USED FOR UNKNOWN INDICATION
  4. OLANZAPINE. [Suspect]
     Active Substance: OLANZAPINE
     Indication: PRODUCT USED FOR UNKNOWN INDICATION
  5. TACHIPIRINA [Suspect]
     Active Substance: ACETAMINOPHEN
     Indication: PRODUCT USED FOR UNKNOWN INDICATION

REACTIONS (4)
  - Dysarthria [Unknown]
  - Mucosal dryness [Unknown]
  - Drug use disorder [Unknown]
  - Sopor [Unknown]

NARRATIVE: CASE EVENT DATE: 20170303
